FAERS Safety Report 19037175 (Version 1)
Quarter: 2021Q1

REPORT INFORMATION
  Report Type: Spontaneous
  Country: CA (occurrence: CA)
  Receive Date: 20210322
  Receipt Date: 20210322
  Transmission Date: 20210420
  Serious: Yes (Other)
  Sender: FDA-Public Use
  Company Number: CA-ROCHE-2793515

PATIENT
  Age: 45 Year
  Sex: Female

DRUGS (3)
  1. BISOPROLOL [Concomitant]
     Active Substance: BISOPROLOL
  2. RAMIPRIL. [Concomitant]
     Active Substance: RAMIPRIL
  3. TRASTUZUMAB. [Suspect]
     Active Substance: TRASTUZUMAB
     Indication: BREAST CANCER
     Route: 065

REACTIONS (4)
  - Ejection fraction decreased [Unknown]
  - Ventricular hypokinesia [Unknown]
  - Dilatation ventricular [Unknown]
  - Left ventricular dysfunction [Unknown]
